FAERS Safety Report 11269757 (Version 1)
Quarter: 2015Q3

REPORT INFORMATION
  Report Type: Spontaneous
  Country: US (occurrence: None)
  Receive Date: 20150713
  Receipt Date: 20150713
  Transmission Date: 20151125
  Serious: Yes (Other)
  Sender: FDA-Public Use
  Company Number: None

PATIENT
  Age: 60 Year
  Sex: Female
  Weight: 61.24 kg

DRUGS (4)
  1. APAP/CODEINE 300-60MG QUALITEST [Suspect]
     Active Substance: ACETAMINOPHEN\CODEINE PHOSPHATE
     Indication: NERVE INJURY
     Dosage: 1 PILL FOUR TIMES DAILY TAKEN BY MOUTH
     Route: 048
  2. VALIUM [Concomitant]
     Active Substance: DIAZEPAM
  3. APAP/CODEINE 300-60MG QUALITEST [Suspect]
     Active Substance: ACETAMINOPHEN\CODEINE PHOSPHATE
     Indication: POST PROCEDURAL COMPLICATION
     Dosage: 1 PILL FOUR TIMES DAILY TAKEN BY MOUTH
     Route: 048
  4. BACLOFEN. [Concomitant]
     Active Substance: BACLOFEN

REACTIONS (3)
  - Inadequate analgesia [None]
  - Product quality issue [None]
  - Product substitution issue [None]

NARRATIVE: CASE EVENT DATE: 20150710
